FAERS Safety Report 7156366-5 (Version None)
Quarter: 2010Q4

REPORT INFORMATION
  Report Type: 
  Country: None (occurrence: None)
  Receive Date: 20101130
  Receipt Date: 20101117
  Transmission Date: 20110411
  Serious: Yes (Other)
  Sender: FDA-Public Use
  Company Number: 2280705-2010-00016

PATIENT
  Age: 19 Month
  Sex: Male

DRUGS (1)
  1. BABY ORAJEL TEETHING PAIN MEDICINE ORAL PAIN RELIEVER FOR TEETHING [Suspect]
     Dosage: ORAL APPLICATION
     Route: 048
     Dates: start: 20101115

REACTIONS (1)
  - CONVULSION [None]
